FAERS Safety Report 6344167-7 (Version None)
Quarter: 2009Q3

REPORT INFORMATION
  Report Type: 
  Country: None (occurrence: None)
  Receive Date: 20090903
  Receipt Date: 20090903
  Transmission Date: 20100115
  Serious: Yes (Death, Hospitalization)
  Sender: FDA-Public Use
  Company Number: None

PATIENT
  Sex: Male
  Weight: 100.3 kg

DRUGS (2)
  1. CISPLATIN [Suspect]
     Dosage: 163 MG
     Dates: end: 20090630
  2. TAXOTERE [Suspect]
     Dosage: 163 MG
     Dates: end: 20090630

REACTIONS (8)
  - ABDOMINAL PAIN [None]
  - CATHETER SEPSIS [None]
  - DISEASE PROGRESSION [None]
  - HAEMODIALYSIS [None]
  - NAUSEA [None]
  - PROCEDURAL COMPLICATION [None]
  - RENAL FAILURE ACUTE [None]
  - VOMITING [None]
